FAERS Safety Report 9025511 (Version 8)
Quarter: 2013Q4

REPORT INFORMATION
  Report Type: Spontaneous
  Country: US (occurrence: US)
  Receive Date: 20130122
  Receipt Date: 20131004
  Transmission Date: 20140711
  Serious: Yes (Hospitalization, Other)
  Sender: FDA-Public Use
  Company Number: US-009507513-1301USA010152

PATIENT
  Sex: Female
  Weight: 52.61 kg

DRUGS (8)
  1. FOSAMAX [Suspect]
     Indication: OSTEOPOROSIS
     Dosage: 70 MG, QW
     Route: 048
     Dates: end: 201105
  2. FOSAMAX [Suspect]
     Indication: OSTEOPENIA
  3. FOSAMAX PLUS D [Suspect]
     Indication: OSTEOPENIA
     Dosage: 70 MG/2800 IU UNK
     Route: 048
  4. ALENDRONATE SODIUM [Suspect]
     Indication: OSTEOPOROSIS
     Dosage: 70 MG, QW
     Route: 048
     Dates: start: 2010, end: 2010
  5. ALENDRONATE SODIUM [Suspect]
     Indication: OSTEOPENIA
  6. CALCIUM (UNSPECIFIED) (+) VITAMIN D (UNSPECIFIED) [Concomitant]
     Indication: OSTEOPOROSIS
  7. VITAMINS (UNSPECIFIED) [Concomitant]
     Dosage: 1 DF, QD
  8. IRON (UNSPECIFIED) [Concomitant]
     Dosage: 1 DF, QD

REACTIONS (24)
  - Femur fracture [Unknown]
  - Intramedullary rod insertion [Unknown]
  - Femur fracture [Unknown]
  - Hospitalisation [Unknown]
  - Low turnover osteopathy [Unknown]
  - Depression [Unknown]
  - Arthritis [Unknown]
  - Sinus headache [Unknown]
  - Migraine [Unknown]
  - Hypercholesterolaemia [Unknown]
  - Carpal tunnel syndrome [Unknown]
  - Spinal osteoarthritis [Unknown]
  - Tonsillectomy [Unknown]
  - Adenoidectomy [Unknown]
  - Tooth extraction [Unknown]
  - Debridement [Unknown]
  - Anxiety [Unknown]
  - Sleep disorder [Unknown]
  - Oedema [Unknown]
  - Fibrocystic breast disease [Unknown]
  - Pain [Unknown]
  - Gastrooesophageal reflux disease [Not Recovered/Not Resolved]
  - Headache [Unknown]
  - Muscle spasms [Unknown]
